FAERS Safety Report 23584206 (Version 1)
Quarter: 2024Q1

REPORT INFORMATION
  Report Type: Spontaneous
  Country: FR (occurrence: FR)
  Receive Date: 20240301
  Receipt Date: 20240301
  Transmission Date: 20240410
  Serious: Yes (Hospitalization, Other)
  Sender: FDA-Public Use
  Company Number: FR-AFSSAPS-BR2024000116

PATIENT
  Age: 18 Year
  Sex: Female
  Weight: 57 kg

DRUGS (1)
  1. AMOXICILLIN [Suspect]
     Active Substance: AMOXICILLIN
     Indication: Otitis media acute
     Dosage: 1 GRAM, TWO TIMES A DAY (MORNING AND EVENING)
     Route: 048
     Dates: start: 20230929, end: 20231006

REACTIONS (4)
  - Rash maculo-papular [Recovered/Resolved]
  - Hepatic cytolysis [Recovering/Resolving]
  - Face oedema [Recovered/Resolved]
  - Vomiting [Recovered/Resolved]

NARRATIVE: CASE EVENT DATE: 20231007
